FAERS Safety Report 23129114 (Version 1)
Quarter: 2023Q4

REPORT INFORMATION
  Report Type: Spontaneous
  Country: US (occurrence: US)
  Receive Date: 20231031
  Receipt Date: 20231031
  Transmission Date: 20240110
  Serious: No
  Sender: FDA-Public Use
  Company Number: US-OPELLA-2023OHG010129

PATIENT
  Sex: Male

DRUGS (1)
  1. GOLD BOND ANTI ITCH (MENTHOL\PRAMOXINE HYDROCHLORIDE) [Suspect]
     Active Substance: MENTHOL\PRAMOXINE HYDROCHLORIDE
     Indication: Product used for unknown indication

REACTIONS (1)
  - Pruritus [Unknown]
